FAERS Safety Report 17976900 (Version 4)
Quarter: 2020Q3

REPORT INFORMATION
  Report Type: Spontaneous
  Country: CN (occurrence: CN)
  Receive Date: 20200702
  Receipt Date: 20200713
  Transmission Date: 20201103
  Serious: Yes (Death, Hospitalization, Other)
  Sender: FDA-Public Use
  Company Number: CN-ASTRAZENECA-2020SE82873

PATIENT
  Age: 61 Year
  Sex: Female
  Weight: 60 kg

DRUGS (3)
  1. IMFINZI [Suspect]
     Active Substance: DURVALUMAB
     Indication: NON-SMALL CELL LUNG CANCER
     Dosage: 620.0MG EVERY CYCLE
     Route: 042
     Dates: end: 20200420
  2. IMFINZI [Suspect]
     Active Substance: DURVALUMAB
     Indication: NON-SMALL CELL LUNG CANCER
     Dosage: THE SPECIFICATIONS WERE 500MG / 10ML AND 120MG / 2.4ML
     Route: 042
     Dates: start: 201912
  3. TAIXINSEN [Concomitant]
     Route: 065
     Dates: start: 201811, end: 201910

REACTIONS (10)
  - Diarrhoea [Fatal]
  - Dyspepsia [Unknown]
  - Gastric ulcer [Unknown]
  - Malignant neoplasm progression [Unknown]
  - Neoplasm progression [Not Recovered/Not Resolved]
  - Asthenia [Unknown]
  - Fatigue [Not Recovered/Not Resolved]
  - Gastrointestinal haemorrhage [Fatal]
  - Decreased appetite [Not Recovered/Not Resolved]
  - Fall [Unknown]

NARRATIVE: CASE EVENT DATE: 201912
